FAERS Safety Report 11333159 (Version 1)
Quarter: 2015Q3

REPORT INFORMATION
  Report Type: Spontaneous
  Country: US (occurrence: US)
  Receive Date: 20150803
  Receipt Date: 20150803
  Transmission Date: 20151125
  Serious: Yes (Hospitalization)
  Sender: FDA-Public Use
  Company Number: US-ELI_LILLY_AND_COMPANY-US200605002722

PATIENT
  Age: 35 Year
  Sex: Male
  Weight: 74.83 kg

DRUGS (5)
  1. BUPROPION. [Concomitant]
     Active Substance: BUPROPION
     Dates: start: 200203, end: 200403
  2. ARIPIPRAZOLE. [Concomitant]
     Active Substance: ARIPIPRAZOLE
     Dates: start: 200307, end: 200307
  3. ZYPREXA [Suspect]
     Active Substance: OLANZAPINE
     Indication: SLEEP DISORDER
     Dosage: 2.5 MG, UNK
     Dates: start: 20030521
  4. ZYPREXA [Suspect]
     Active Substance: OLANZAPINE
     Dosage: 20 MG, UNK
  5. ZYPREXA [Suspect]
     Active Substance: OLANZAPINE
     Dosage: 10 MG, UNK
     Dates: start: 2001, end: 20030910

REACTIONS (3)
  - Cerebrovascular accident [Unknown]
  - Diabetes mellitus [Not Recovered/Not Resolved]
  - Hyperglycaemia [Unknown]

NARRATIVE: CASE EVENT DATE: 200107
